FAERS Safety Report 8952518 (Version 1)
Quarter: 2012Q4

REPORT INFORMATION
  Report Type: Report from Study
  Country: CA (occurrence: CA)
  Receive Date: 20121205
  Receipt Date: 20121205
  Transmission Date: 20130627
  Serious: Yes (Hospitalization)
  Sender: FDA-Public Use
  Company Number: CA-JNJFOC-20121113306

PATIENT
  Age: 53 Year
  Sex: Female
  Weight: 84 kg

DRUGS (1)
  1. REMICADE [Suspect]
     Indication: VOGT-KOYANAGI-HARADA SYNDROME
     Dosage: for 52 weeks
     Route: 042
     Dates: start: 2008

REACTIONS (1)
  - Diverticulitis [Recovered/Resolved]
